FAERS Safety Report 15965694 (Version 6)
Quarter: 2019Q4

REPORT INFORMATION
  Report Type: Report from Study
  Country: None (occurrence: KR)
  Receive Date: 20190215
  Receipt Date: 20191205
  Transmission Date: 20200122
  Serious: Yes (Hospitalization)
  Sender: FDA-Public Use
  Company Number: KR-ABBVIE-19K-090-2664239-00

PATIENT
  Age: 74 Year
  Sex: Male
  Weight: 63 kg

DRUGS (14)
  1. LINAGLIPTIN [Concomitant]
     Active Substance: LINAGLIPTIN
     Indication: DIABETES MELLITUS
     Route: 048
  2. HUMALOG [Concomitant]
     Active Substance: INSULIN LISPRO
     Route: 058
     Dates: start: 20190209, end: 20190209
  3. ASPIRIN ENTERIC COATED [Concomitant]
     Active Substance: ASPIRIN
     Indication: ACUTE MYOCARDIAL INFARCTION
     Route: 048
  4. ZOLPIDEM TARTRATE. [Concomitant]
     Active Substance: ZOLPIDEM TARTRATE
     Indication: INSOMNIA
     Route: 048
  5. FURIX [Concomitant]
     Indication: ACUTE MYOCARDIAL INFARCTION
     Route: 048
     Dates: start: 20190613, end: 201906
  6. HUMALOG [Concomitant]
     Active Substance: INSULIN LISPRO
     Indication: DIABETES MELLITUS
     Dosage: 1000 IU/10ML
     Route: 058
     Dates: start: 20190209, end: 20190209
  7. MEVALOTIN [Concomitant]
     Active Substance: PRAVASTATIN SODIUM
     Indication: HYPERCHOLESTEROLAEMIA
     Route: 048
     Dates: start: 20190409
  8. CARVEDILOL. [Concomitant]
     Active Substance: CARVEDILOL
     Indication: ACUTE MYOCARDIAL INFARCTION
     Route: 048
  9. MAVIRET [Suspect]
     Active Substance: GLECAPREVIR\PIBRENTASVIR
     Route: 048
     Dates: start: 20190211, end: 20190312
  10. APIXABAN [Concomitant]
     Active Substance: APIXABAN
     Indication: ACUTE MYOCARDIAL INFARCTION
     Route: 048
  11. METFORMIN HYDROCHLORIDE. [Concomitant]
     Active Substance: METFORMIN HYDROCHLORIDE
     Indication: DIABETES MELLITUS
     Route: 048
  12. PREGABALIN. [Concomitant]
     Active Substance: PREGABALIN
     Indication: ACUTE MYOCARDIAL INFARCTION
     Route: 048
  13. MAVIRET [Suspect]
     Active Substance: GLECAPREVIR\PIBRENTASVIR
     Indication: CHRONIC HEPATITIS C
     Route: 048
     Dates: start: 20190116, end: 2019
  14. DIGOXIN. [Concomitant]
     Active Substance: DIGOXIN
     Indication: ACUTE MYOCARDIAL INFARCTION
     Route: 048

REACTIONS (1)
  - Mechanical ileus [Recovered/Resolved]

NARRATIVE: CASE EVENT DATE: 20190208
